FAERS Safety Report 13390493 (Version 1)
Quarter: 2017Q1

REPORT INFORMATION
  Report Type: Spontaneous
  Country: US (occurrence: US)
  Receive Date: 20170331
  Receipt Date: 20170331
  Transmission Date: 20170429
  Serious: No
  Sender: FDA-Public Use
  Company Number: US-PFIZER INC-2017140076

PATIENT
  Age: 38 Year
  Sex: Female
  Weight: 79.38 kg

DRUGS (2)
  1. ADVIL [Suspect]
     Active Substance: IBUPROFEN
     Indication: ANALGESIC THERAPY
     Dosage: 200 MG, 1X/DAY
     Route: 048
     Dates: start: 20170220, end: 20170315
  2. ADVIL [Suspect]
     Active Substance: IBUPROFEN
     Indication: HEADACHE

REACTIONS (2)
  - Drug ineffective [Unknown]
  - Vomiting [Recovered/Resolved]

NARRATIVE: CASE EVENT DATE: 201702
